FAERS Safety Report 6966947-7 (Version None)
Quarter: 2010Q3

REPORT INFORMATION
  Report Type: 
  Country: None (occurrence: None)
  Receive Date: 20100906
  Receipt Date: 20100826
  Transmission Date: 20110219
  Serious: Yes (Hospitalization)
  Sender: FDA-Public Use
  Company Number: FR-BRISTOL-MYERS SQUIBB COMPANY-15268808

PATIENT
  Age: 65 Year
  Sex: Male

DRUGS (8)
  1. GLUCOPHAGE [Suspect]
     Indication: TYPE 2 DIABETES MELLITUS
     Dosage: GLUCOPHAGE 1000MG
     Route: 048
     Dates: start: 20080930, end: 20081007
  2. BYETTA [Suspect]
     Indication: TYPE 2 DIABETES MELLITUS
     Dosage: BYETTA 5MCG SOLN FOR INJ
     Route: 058
     Dates: start: 20080930, end: 20081007
  3. ENALAPRIL MALEATE [Suspect]
     Indication: RENAL HYPERTENSION
     Dosage: 1DF= 20MG TAB
     Route: 048
     Dates: end: 20081007
  4. IPERTEN [Concomitant]
     Indication: HYPERTENSION
     Dosage: TABS 1DF=20MG
     Route: 048
  5. APROVEL [Concomitant]
     Indication: RENAL HYPERTENSION
     Dosage: TABS 1DF=300MG
     Route: 048
  6. KERLONE [Concomitant]
     Indication: HYPERTENSION
     Dosage: COATED TABLET
     Route: 048
  7. LASIX [Concomitant]
     Indication: HYPERTENSION
     Dosage: 1DF=120MG
     Route: 048
  8. REGULAR INSULIN [Concomitant]
     Indication: TYPE 2 DIABETES MELLITUS

REACTIONS (1)
  - RENAL FAILURE [None]
